FAERS Safety Report 13995697 (Version 3)
Quarter: 2017Q4

REPORT INFORMATION
  Report Type: Spontaneous
  Country: US (occurrence: US)
  Receive Date: 20170921
  Receipt Date: 20171107
  Transmission Date: 20180321
  Serious: No
  Sender: FDA-Public Use
  Company Number: US-PFIZER INC-2017405593

PATIENT
  Age: 52 Year
  Sex: Female

DRUGS (2)
  1. METHOTREXATE SODIUM. [Suspect]
     Active Substance: METHOTREXATE SODIUM
     Dosage: 25MG/CC SOLUTION 0.5CC
  2. METHOTREXATE. [Suspect]
     Active Substance: METHOTREXATE
     Dosage: UNK
     Route: 048

REACTIONS (4)
  - Diarrhoea [Unknown]
  - Malaise [Unknown]
  - Nausea [Unknown]
  - Fatigue [Unknown]
